FAERS Safety Report 20658695 (Version 1)
Quarter: 2022Q1

REPORT INFORMATION
  Report Type: Spontaneous
  Country: US (occurrence: None)
  Receive Date: 20220330
  Receipt Date: 20220330
  Transmission Date: 20220423
  Serious: No
  Sender: FDA-Public Use
  Company Number: None

PATIENT
  Age: 65 Year
  Sex: Female
  Weight: 72.9 kg

DRUGS (6)
  1. VUITY [Suspect]
     Active Substance: PILOCARPINE HYDROCHLORIDE
     Indication: Presbyopia
     Dosage: OTHER QUANTITY : 1 DROP(S);?FREQUENCY : DAILY;?
     Route: 047
     Dates: start: 20220317
  2. AMLODIPINE BESYLATE [Concomitant]
     Active Substance: AMLODIPINE BESYLATE
  3. LISINOPRIL [Concomitant]
     Active Substance: LISINOPRIL
  4. VITAMIN SHOPPE ULTIMATE WOMEN 50+ MULTIVITAMIN [Concomitant]
  5. NATUREMADE MAGNESIUM [Concomitant]
  6. NATURES TRUTH GINKGO BILOBA [Concomitant]

REACTIONS (4)
  - Photosensitivity reaction [None]
  - Amblyopia [None]
  - Headache [None]
  - Vitreous floaters [None]

NARRATIVE: CASE EVENT DATE: 20220330
